FAERS Safety Report 25630112 (Version 2)
Quarter: 2025Q3

REPORT INFORMATION
  Report Type: Spontaneous
  Country: US (occurrence: US)
  Receive Date: 20250801
  Receipt Date: 20250819
  Transmission Date: 20251020
  Serious: No
  Sender: SUNOVION
  Company Number: US-SUMITOMO PHARMA SWITZERLAND GMBH-2025SPA009606

PATIENT
  Age: 91 Year
  Sex: Male

DRUGS (10)
  1. ORGOVYX [Suspect]
     Active Substance: RELUGOLIX
     Indication: Prostate cancer
     Route: 048
  2. ORGOVYX [Suspect]
     Active Substance: RELUGOLIX
     Route: 048
  3. ASPIRIN [Concomitant]
     Active Substance: ASPIRIN
  4. CARVEDILOL [Concomitant]
     Active Substance: CARVEDILOL
  5. CRESTOR [Concomitant]
     Active Substance: ROSUVASTATIN CALCIUM
  6. ERLEADA [Concomitant]
     Active Substance: APALUTAMIDE
  7. IVERMECTIN [Concomitant]
     Active Substance: IVERMECTIN
  8. NYSTATIN [Concomitant]
     Active Substance: NYSTATIN
  9. RAMIPRIL [Concomitant]
     Active Substance: RAMIPRIL
  10. TRIAMCINOLONE [Concomitant]
     Active Substance: TRIAMCINOLONE

REACTIONS (4)
  - Gait disturbance [Unknown]
  - Pollakiuria [Unknown]
  - Abdominal distension [Unknown]
  - Polyuria [Unknown]
